FAERS Safety Report 5408748-7 (Version None)
Quarter: 2007Q3

REPORT INFORMATION
  Report Type: 
  Country: None (occurrence: None)
  Receive Date: 20070808
  Receipt Date: 20070806
  Transmission Date: 20080115
  Serious: Yes (Other)
  Sender: FDA-Public Use
  Company Number: B0482132A

PATIENT
  Age: 76 Year
  Sex: Female

DRUGS (5)
  1. VALTREX [Suspect]
     Indication: HERPES ZOSTER
     Dosage: 500MG PER DAY
     Route: 048
     Dates: start: 20061205, end: 20061205
  2. TANKARU [Concomitant]
     Route: 048
  3. ARGAMATE [Concomitant]
     Route: 048
  4. RISUMIC [Concomitant]
     Route: 048
  5. LOXONIN [Concomitant]
     Route: 065

REACTIONS (2)
  - HALLUCINATION [None]
  - RESTLESSNESS [None]
